FAERS Safety Report 7579046-0 (Version None)
Quarter: 2011Q2

REPORT INFORMATION
  Report Type: 
  Country: None (occurrence: None)
  Receive Date: 20110628
  Receipt Date: 20110623
  Transmission Date: 20111010
  Serious: Yes (Death, Other)
  Sender: FDA-Public Use
  Company Number: PHHY2011AU56192

PATIENT
  Age: 44 Year

DRUGS (6)
  1. CHLORPROMAZINE [Suspect]
     Dosage: UNK
  2. DIAZEPAM [Suspect]
     Dosage: UNK
  3. METHADONE HCL [Suspect]
     Dosage: UNK
  4. METHAMPHETAMINE HYDROCHLORIDE [Suspect]
     Dosage: UNK
  5. CITALOPRAM HYDROBROMIDE [Suspect]
     Dosage: UNK
  6. MIRTAZAPINE [Suspect]
     Dosage: UNK

REACTIONS (3)
  - SNORING [None]
  - TOXICITY TO VARIOUS AGENTS [None]
  - RESPIRATORY DEPRESSION [None]
